FAERS Safety Report 8528121 (Version 6)
Quarter: 2013Q4

REPORT INFORMATION
  Report Type: Report from Study
  Country: BR (occurrence: BR)
  Receive Date: 20120424
  Receipt Date: 20131224
  Transmission Date: 20140711
  Serious: Yes (Hospitalization, Other)
  Sender: FDA-Public Use
  Company Number: BR-ROCHE-1061599

PATIENT
  Sex: Female
  Weight: 85 kg

DRUGS (11)
  1. ACTEMRA [Suspect]
     Indication: RHEUMATOID ARTHRITIS
     Route: 042
     Dates: start: 20110503
  2. PREDNISONE [Concomitant]
  3. LOSARTAN [Concomitant]
     Route: 065
  4. ACETAMINOPHEN WITH CODEINE [Concomitant]
  5. LYRICA [Concomitant]
  6. TRAMAL [Concomitant]
  7. ADALAT [Concomitant]
  8. PRELONE [Concomitant]
  9. ENALAPRIL [Concomitant]
     Indication: HYPERTENSION
  10. PANTOPRAZOLE [Concomitant]
  11. ALENDRONATE [Concomitant]
     Route: 065

REACTIONS (10)
  - Renal failure [Unknown]
  - Arthropathy [Unknown]
  - Synovial cyst [Unknown]
  - Nodule [Unknown]
  - Rotator cuff syndrome [Unknown]
  - Pneumonia [Recovered/Resolved with Sequelae]
  - Blood pressure fluctuation [Not Recovered/Not Resolved]
  - Red blood cell sedimentation rate abnormal [Not Recovered/Not Resolved]
  - Blood test abnormal [Not Recovered/Not Resolved]
  - Swelling [Unknown]
